FAERS Safety Report 16737635 (Version 1)
Quarter: 2019Q3

REPORT INFORMATION
  Report Type: Spontaneous
  Country: FR (occurrence: FR)
  Receive Date: 20190823
  Receipt Date: 20190823
  Transmission Date: 20191005
  Serious: Yes (Other)
  Sender: FDA-Public Use
  Company Number: FR-ALSI-201900362

PATIENT
  Age: 81 Year
  Sex: Female

DRUGS (1)
  1. OXYGEN. [Suspect]
     Active Substance: OXYGEN
     Indication: PRODUCT USED FOR UNKNOWN INDICATION
     Route: 055

REACTIONS (4)
  - Blister [Recovering/Resolving]
  - Wrong technique in product usage process [Recovering/Resolving]
  - Accidental exposure to product [Recovering/Resolving]
  - Cold burn [Recovering/Resolving]
